FAERS Safety Report 6752253-2 (Version None)
Quarter: 2010Q2

REPORT INFORMATION
  Report Type: 
  Country: None (occurrence: None)
  Receive Date: 20100601
  Receipt Date: 20100601
  Transmission Date: 20101027
  Serious: Yes (Other)
  Sender: FDA-Public Use
  Company Number: None

PATIENT
  Age: 39 Year
  Sex: Female
  Weight: 65.7716 kg

DRUGS (1)
  1. ALLI [Suspect]
     Indication: OBESITY
     Dosage: 1 PILL WITH EACH MEAL PO
     Route: 048
     Dates: start: 20091202, end: 20100527

REACTIONS (4)
  - FATIGUE [None]
  - LIVER INJURY [None]
  - PRURITUS [None]
  - WEIGHT DECREASED [None]
